FAERS Safety Report 21448528 (Version 1)
Quarter: 2022Q4

REPORT INFORMATION
  Report Type: Report from Study
  Country: NL (occurrence: NL)
  Receive Date: 20221013
  Receipt Date: 20221013
  Transmission Date: 20230113
  Serious: Yes (Death)
  Sender: FDA-Public Use
  Company Number: NL-ABBVIE-4152337

PATIENT
  Age: 76 Year
  Sex: Male

DRUGS (3)
  1. CARBIDOPA\LEVODOPA [Suspect]
     Active Substance: CARBIDOPA\LEVODOPA
     Indication: Product used for unknown indication
     Dosage: MD 5.5 ML; CD 1.9 ML/H; ED 1.3 ML
  2. CARBIDOPA\LEVODOPA [Suspect]
     Active Substance: CARBIDOPA\LEVODOPA
  3. CLOZAPINE CF [Concomitant]
     Indication: Product used for unknown indication

REACTIONS (1)
  - Death [Fatal]
